FAERS Safety Report 6122192-9 (Version None)
Quarter: 2009Q1

REPORT INFORMATION
  Report Type: 
  Country: None (occurrence: None)
  Receive Date: 20090316
  Receipt Date: 20090316
  Transmission Date: 20090719
  Serious: No
  Sender: FDA-Public Use
  Company Number: None

PATIENT
  Age: 65 Year
  Sex: Male
  Weight: 90.7194 kg

DRUGS (8)
  1. LYRICA [Suspect]
     Indication: FACET JOINT SYNDROME
     Dosage: 75 MG 2X/DAY PO
     Route: 048
     Dates: start: 20090225, end: 20090314
  2. LYRICA [Suspect]
     Indication: FLANK PAIN
     Dosage: 75 MG 2X/DAY PO
     Route: 048
     Dates: start: 20090225, end: 20090314
  3. LYRICA [Suspect]
     Indication: NEURALGIA
     Dosage: 75 MG 2X/DAY PO
     Route: 048
     Dates: start: 20090225, end: 20090314
  4. WARFARIN SODIUM [Concomitant]
  5. PREVACID [Concomitant]
  6. FOLIC ACID [Concomitant]
  7. CALCIUM [Concomitant]
  8. MULTI-VITAMIN [Concomitant]

REACTIONS (3)
  - ABNORMAL BEHAVIOUR [None]
  - DIARRHOEA [None]
  - THINKING ABNORMAL [None]
